FAERS Safety Report 5988414-X (Version None)
Quarter: 2008Q4

REPORT INFORMATION
  Report Type: 
  Country: None (occurrence: None)
  Receive Date: 20081204
  Receipt Date: 20081202
  Transmission Date: 20090506
  Serious: Yes (Other)
  Sender: FDA-Public Use
  Company Number: GXKR2008DE11390

PATIENT
  Sex: Male
  Weight: 81.3 kg

DRUGS (1)
  1. CARBOPLATIN [Suspect]
     Indication: HYPOPHARYNGEAL CANCER
     Dosage: 400 MG, QD, INTRAVENOUS
     Route: 042
     Dates: start: 20081114, end: 20081114

REACTIONS (5)
  - ANXIETY [None]
  - CIRCULATORY COLLAPSE [None]
  - ERYTHEMA [None]
  - HYPERHIDROSIS [None]
  - PRURITUS [None]
